FAERS Safety Report 9247582 (Version 1)
Quarter: 2013Q2

REPORT INFORMATION
  Report Type: Spontaneous
  Country: US (occurrence: US)
  Receive Date: 20130423
  Receipt Date: 20130423
  Transmission Date: 20140414
  Serious: Yes (Death, Other)
  Sender: FDA-Public Use
  Company Number: US-PFIZER INC-2013124381

PATIENT
  Sex: Female

DRUGS (1)
  1. CELEBREX [Suspect]
     Dosage: 200 MG, ALTERNATE DAY

REACTIONS (6)
  - Death [Fatal]
  - Cardiac murmur [Unknown]
  - Chest pain [Unknown]
  - Hypertension [Unknown]
  - Dyspnoea [Unknown]
  - Paraesthesia [Unknown]
